FAERS Safety Report 8090411 (Version 3)
Quarter: 2013Q2

REPORT INFORMATION
  Report Type: Spontaneous
  Country: US (occurrence: US)
  Receive Date: 20110815
  Receipt Date: 20130523
  Transmission Date: 20140414
  Serious: Yes (Other)
  Sender: FDA-Public Use
  Company Number: US-ASTRAZENECA-2011SE47121

PATIENT
  Age: 77 Year
  Sex: Female

DRUGS (4)
  1. NEXIUM [Suspect]
     Route: 048
  2. PRILOSEC OTC [Suspect]
     Route: 048
  3. RESTASIS [Concomitant]
  4. CYMBALTA [Concomitant]

REACTIONS (14)
  - Retinal detachment [Unknown]
  - Fall [Unknown]
  - Multiple fractures [Unknown]
  - Gastrooesophageal reflux disease [Unknown]
  - Dyspnoea [Unknown]
  - Dysphagia [Unknown]
  - Abdominal distension [Unknown]
  - Diplopia [Unknown]
  - Haemorrhage [Unknown]
  - Abdominal discomfort [Unknown]
  - Abdominal pain upper [Unknown]
  - Malaise [Unknown]
  - Drug ineffective [Unknown]
  - Drug dose omission [Unknown]
